FAERS Safety Report 21590556 (Version 1)
Quarter: 2022Q4

REPORT INFORMATION
  Report Type: Report from Study
  Country: US (occurrence: US)
  Receive Date: 20221114
  Receipt Date: 20221114
  Transmission Date: 20230112
  Serious: No
  Sender: FDA-Public Use
  Company Number: US-ABBVIE-4155285

PATIENT
  Sex: Male

DRUGS (4)
  1. HUMIRA [Suspect]
     Active Substance: ADALIMUMAB
     Indication: Psoriasis
     Route: 058
  2. Moderna [Concomitant]
     Indication: COVID-19 immunisation
     Dosage: FIRST DOSE, ONE IN ONCE
     Route: 030
     Dates: start: 20210113, end: 20210113
  3. Moderna [Concomitant]
     Indication: COVID-19 immunisation
     Dosage: SECOND DOSE, ONE IN ONCE
     Route: 030
     Dates: start: 20210211, end: 20210211
  4. Moderna [Concomitant]
     Indication: COVID-19 immunisation
     Dosage: THIRD DOSE, ONE IN ONCE
     Route: 030
     Dates: start: 20211118, end: 20211118

REACTIONS (1)
  - Allergic cough [Unknown]
